FAERS Safety Report 17455532 (Version 1)
Quarter: 2020Q1

REPORT INFORMATION
  Report Type: Spontaneous
  Country: NL (occurrence: NL)
  Receive Date: 20200225
  Receipt Date: 20200225
  Transmission Date: 20200409
  Serious: Yes (Other)
  Sender: FDA-Public Use
  Company Number: NL-LUPIN PHARMACEUTICALS INC.-2020-00953

PATIENT
  Age: 76 Year
  Sex: Female

DRUGS (1)
  1. CEFTRIAXONE. [Suspect]
     Active Substance: CEFTRIAXONE
     Indication: SEPTIC SHOCK
     Dosage: 2000 MILLIGRAM, QD
     Route: 042

REACTIONS (3)
  - Renal failure [Unknown]
  - Drug level increased [Recovered/Resolved]
  - Drug-disease interaction [Unknown]
